FAERS Safety Report 7940514-0 (Version None)
Quarter: 2011Q4

REPORT INFORMATION
  Report Type: 
  Country: None (occurrence: None)
  Receive Date: 20111108
  Receipt Date: 20100920
  Transmission Date: 20120403
  Serious: Yes (Other)
  Sender: FDA-Public Use
  Company Number: PHHY2010US62489

PATIENT
  Age: 54 Year
  Sex: Female

DRUGS (2)
  1. ZOMETA [Suspect]
  2. REVLIMID [Concomitant]

REACTIONS (3)
  - OSTEONECROSIS OF JAW [None]
  - JAW FRACTURE [None]
  - JAW OPERATION [None]
